FAERS Safety Report 23445340 (Version 1)
Quarter: 2024Q1

REPORT INFORMATION
  Report Type: Spontaneous
  Country: MD (occurrence: MD)
  Receive Date: 20240126
  Receipt Date: 20240126
  Transmission Date: 20240409
  Serious: Yes (Other)
  Sender: FDA-Public Use
  Company Number: MD-JNJFOC-20240145270

PATIENT
  Age: 5 Year
  Sex: Male
  Weight: 18 kg

DRUGS (3)
  1. RISPERIDONE [Suspect]
     Active Substance: RISPERIDONE
     Indication: Autism spectrum disorder
     Route: 048
     Dates: start: 20231216, end: 20240107
  2. BOTAMINE [Concomitant]
     Indication: Autism spectrum disorder
     Route: 048
     Dates: start: 20231216
  3. CINNARIZINE [Concomitant]
     Active Substance: CINNARIZINE
     Indication: Autism spectrum disorder
     Dosage: HALF TABLET 02 TIMES A DAY
     Route: 048
     Dates: start: 20231216

REACTIONS (7)
  - Miosis [Recovering/Resolving]
  - Paraesthesia [Recovering/Resolving]
  - Tachypnoea [Not Recovered/Not Resolved]
  - Abnormal weight gain [Not Recovered/Not Resolved]
  - Priapism [Not Recovered/Not Resolved]
  - Tachycardia [Not Recovered/Not Resolved]
  - Tremor [Recovering/Resolving]

NARRATIVE: CASE EVENT DATE: 20231201
